FAERS Safety Report 9424462 (Version 4)
Quarter: 2014Q3

REPORT INFORMATION
  Report Type: Spontaneous
  Country: US (occurrence: None)
  Receive Date: 20130725
  Receipt Date: 20140807
  Transmission Date: 20150326
  Serious: Yes (Hospitalization)
  Sender: FDA-Public Use
  Company Number: 2013MPI00430

PATIENT
  Age: 25 Year
  Sex: Female
  Weight: 65.6 kg

DRUGS (9)
  1. BRENTUXIMAB VEDOTIN [Suspect]
     Active Substance: BRENTUXIMAB VEDOTIN
     Indication: HODGKIN^S DISEASE
     Dosage: 1.2 MG/KG, Q14D, INTRAVENOUS
     Route: 042
     Dates: start: 20130321, end: 20130613
  2. AMBIEN (ZOLPIDEM TARTRATE) [Concomitant]
  3. DACARBAZINE. [Suspect]
     Active Substance: DACARBAZINE
     Indication: HODGKIN^S DISEASE
     Dosage: QCYCLE
     Route: 042
     Dates: start: 20130321, end: 20130702
  4. ACETAMINOPHEN W/HYDROCODONE (ACETAMINOPHEN W/HYDROCODONE) [Concomitant]
  5. ATIVAN [Concomitant]
     Active Substance: LORAZEPAM
  6. VINBLASTINE [Suspect]
     Active Substance: VINBLASTINE
     Indication: HODGKIN^S DISEASE
     Dosage: QCYCLE
     Route: 042
     Dates: start: 20130321, end: 20130702
  7. DOXORUBICIN [Suspect]
     Active Substance: DOXORUBICIN
     Indication: HODGKIN^S DISEASE
     Dosage: QCYCLE
     Route: 042
     Dates: start: 20130321, end: 20130702
  8. PROCHLORPERAZINE. [Concomitant]
     Active Substance: PROCHLORPERAZINE
  9. ONDANSETRON. [Concomitant]
     Active Substance: ONDANSETRON

REACTIONS (12)
  - Pyrexia [None]
  - Hypophagia [None]
  - Neutrophil count decreased [None]
  - Malaise [None]
  - Pain [None]
  - Musculoskeletal stiffness [None]
  - Chest X-ray abnormal [None]
  - Meningitis viral [None]
  - Vomiting [None]
  - Rhinovirus infection [None]
  - Weight decreased [None]
  - Headache [None]

NARRATIVE: CASE EVENT DATE: 20130705
